FAERS Safety Report 8976036 (Version 1)
Quarter: 2012Q4

REPORT INFORMATION
  Report Type: 
  Country: DK (occurrence: FR)
  Receive Date: 20121220
  Receipt Date: 20121220
  Transmission Date: 20130627
  Serious: Yes (Other)
  Sender: FDA-Public Use
  Company Number: FR-FRI-1000041150

PATIENT
  Age: 84 Year
  Sex: Female
  Weight: 70 kg

DRUGS (4)
  1. ESCITALOPRAM [Suspect]
     Indication: DEPRESSION
     Dosage: 20 mg
     Route: 048
     Dates: start: 201208, end: 20121001
  2. ESCITALOPRAM [Suspect]
     Dosage: 10 mg
     Route: 048
  3. SPIRONOLACTONE [Concomitant]
     Dosage: 50 mg
  4. FUROSEMIDE [Concomitant]
     Indication: HYPERTENSION
     Dosage: 20 mg

REACTIONS (4)
  - Bradycardia [Not Recovered/Not Resolved]
  - Atrial fibrillation [Not Recovered/Not Resolved]
  - Arrhythmia [Not Recovered/Not Resolved]
  - Tachycardia [Not Recovered/Not Resolved]
